FAERS Safety Report 14828842 (Version 12)
Quarter: 2019Q3

REPORT INFORMATION
  Report Type: Spontaneous
  Country: US (occurrence: US)
  Receive Date: 20180430
  Receipt Date: 20190711
  Transmission Date: 20191004
  Serious: No
  Sender: FDA-Public Use
  Company Number: US-PFIZER INC-2018174067

PATIENT
  Age: 70 Year
  Sex: Female
  Weight: 76 kg

DRUGS (3)
  1. IBRANCE [Suspect]
     Active Substance: PALBOCICLIB
     Dosage: UNK
     Dates: start: 201808, end: 2018
  2. IBRANCE [Suspect]
     Active Substance: PALBOCICLIB
     Indication: BREAST CANCER METASTATIC
     Dosage: 125 MG, CYCLIC (DAILY WITH FOOD TAKE 3 WEEKS ON AND THEN 1 WEEK OFF)
     Route: 048
     Dates: start: 20180423, end: 2018
  3. FASLODEX [Concomitant]
     Active Substance: FULVESTRANT
     Indication: BREAST CANCER RECURRENT
     Dosage: UNK [UNKNOWN 2 SHOTS 1 IN EACH BUTTOCK ON THE 15TH DAY OF TAKING IBRANCE]

REACTIONS (23)
  - Drug hypersensitivity [Unknown]
  - Parosmia [Unknown]
  - Red blood cell count decreased [Unknown]
  - Pain in jaw [Recovered/Resolved]
  - Full blood count decreased [Unknown]
  - Disorientation [Unknown]
  - Neutrophil count decreased [Recovering/Resolving]
  - Nervousness [Unknown]
  - Medication error [Unknown]
  - Nasal congestion [Recovered/Resolved]
  - White blood cell count decreased [Unknown]
  - Nausea [Recovering/Resolving]
  - Alopecia [Unknown]
  - Sinus disorder [Unknown]
  - Sinusitis [Unknown]
  - Intentional product misuse [Unknown]
  - Motion sickness [Unknown]
  - Nasopharyngitis [Unknown]
  - Fatigue [Unknown]
  - Product dose omission [Unknown]
  - Oral pain [Recovered/Resolved]
  - Dyspepsia [Unknown]
  - Stomatitis [Recovered/Resolved]

NARRATIVE: CASE EVENT DATE: 2018
